FAERS Safety Report 20757743 (Version 1)
Quarter: 2022Q2

REPORT INFORMATION
  Report Type: Spontaneous
  Country: US (occurrence: US)
  Receive Date: 20220427
  Receipt Date: 20220427
  Transmission Date: 20220721
  Serious: No
  Sender: FDA-Public Use
  Company Number: US-PFIZER INC-2021715512

PATIENT
  Age: 67 Year

DRUGS (1)
  1. SILDENAFIL CITRATE [Suspect]
     Active Substance: SILDENAFIL CITRATE
     Indication: Sexual dysfunction
     Dosage: UNK

REACTIONS (2)
  - Nasal congestion [Unknown]
  - Dyspnoea [Unknown]
